FAERS Safety Report 6423121-0 (Version None)
Quarter: 2009Q4

REPORT INFORMATION
  Report Type: 
  Country: None (occurrence: None)
  Receive Date: 20091102
  Receipt Date: 20091006
  Transmission Date: 20100525
  Serious: No
  Sender: FDA-Public Use
  Company Number: US-BAYER-200926911NA

PATIENT
  Sex: Female

DRUGS (2)
  1. CLIMARA PRO [Suspect]
     Indication: DRUG USE FOR UNKNOWN INDICATION
     Dosage: ONCE WEEKLY APPLICATION
     Route: 062
     Dates: start: 20090101
  2. CLIMARA PRO [Suspect]
     Dosage: ONE PATCH/WEEK
     Route: 062
     Dates: start: 20090801

REACTIONS (2)
  - MALAISE [None]
  - VAGINAL HAEMORRHAGE [None]
